FAERS Safety Report 18497110 (Version 1)
Quarter: 2020Q4

REPORT INFORMATION
  Report Type: Spontaneous
  Country: CH (occurrence: CH)
  Receive Date: 20201112
  Receipt Date: 20201112
  Transmission Date: 20210114
  Serious: Yes (Hospitalization)
  Sender: FDA-Public Use
  Company Number: CH-CELGENEUS-CHE-20201100734

PATIENT
  Age: 78 Year
  Sex: Female

DRUGS (9)
  1. LENALIDOMIDE [Suspect]
     Active Substance: LENALIDOMIDE
     Indication: PLASMA CELL MYELOMA
     Route: 048
     Dates: start: 202004, end: 202005
  2. BORTEZOMIB. [Suspect]
     Active Substance: BORTEZOMIB
     Indication: PLASMA CELL MYELOMA
     Dosage: FIRST LINE OF TREATMENT
     Route: 058
     Dates: start: 201612, end: 202004
  3. ZOLEDRONIC ACID [Concomitant]
     Active Substance: ZOLEDRONIC ACID
     Indication: PLASMA CELL MYELOMA
     Dosage: SECOND LINE OF TREATMENT
     Route: 065
     Dates: start: 202004, end: 202005
  4. DARATUMUMAB [Concomitant]
     Active Substance: DARATUMUMAB
     Indication: PLASMA CELL MYELOMA
     Dosage: 16 MILLIGRAM/KILOGRAM (FOURTH LINE OF TREATMENT )
     Route: 042
     Dates: start: 20200825, end: 20201015
  5. BORTEZOMIB. [Suspect]
     Active Substance: BORTEZOMIB
     Dosage: 1.3 MILLIGRAM/SQ. METER (THIRD LINE OF TREATMENT)
     Route: 058
     Dates: start: 20200509, end: 20200609
  6. BORTEZOMIB. [Suspect]
     Active Substance: BORTEZOMIB
     Dosage: 1.3 MILLIGRAM/SQ. METER (FOURTH LINE OF TREATMENT)
     Route: 058
     Dates: start: 20200825, end: 20201015
  7. MELPHALAN/PREDNISONE [Concomitant]
     Indication: PLASMA CELL MYELOMA
     Dosage: CYCLICAL
     Route: 065
     Dates: start: 201612, end: 202004
  8. DEXAMETHASONE. [Concomitant]
     Active Substance: DEXAMETHASONE
     Indication: PLASMA CELL MYELOMA
     Dosage: 20 MILLIGRAM
     Route: 065
     Dates: start: 20200509, end: 20200609
  9. DEXAMETHASONE. [Concomitant]
     Active Substance: DEXAMETHASONE
     Dosage: 20 MILLIGRAM
     Route: 065
     Dates: start: 20200825, end: 20201015

REACTIONS (3)
  - Autonomic nervous system imbalance [Not Recovered/Not Resolved]
  - Myoclonus [Not Recovered/Not Resolved]
  - Orthostatic hypotension [Not Recovered/Not Resolved]

NARRATIVE: CASE EVENT DATE: 202006
